FAERS Safety Report 9691782 (Version 1)
Quarter: 2013Q4

REPORT INFORMATION
  Report Type: Spontaneous
  Country: US (occurrence: US)
  Receive Date: 20131115
  Receipt Date: 20131115
  Transmission Date: 20140711
  Serious: No
  Sender: FDA-Public Use
  Company Number: US-009507513-1311USA005467

PATIENT
  Age: 32 Year
  Sex: Female

DRUGS (2)
  1. SINGULAIR [Suspect]
     Indication: HYPERSENSITIVITY
     Dosage: 1 TABLET 1 PER DAY
     Route: 048
  2. SINGULAIR [Suspect]
     Indication: ASTHMA

REACTIONS (6)
  - Aggression [Unknown]
  - Agitation [Unknown]
  - Mood altered [Unknown]
  - Product quality issue [Unknown]
  - Product substitution issue [Unknown]
  - Stress [Unknown]
